FAERS Safety Report 6392853-5 (Version None)
Quarter: 2009Q4

REPORT INFORMATION
  Report Type: 
  Country: None (occurrence: None)
  Receive Date: 20091007
  Receipt Date: 20090908
  Transmission Date: 20100525
  Serious: No
  Sender: FDA-Public Use
  Company Number: US-ALLERGAN-0912461US

PATIENT
  Age: 59 Year
  Sex: Female

DRUGS (6)
  1. LATISSE [Suspect]
     Indication: GROWTH OF EYELASHES
     Dosage: UNK
     Route: 061
  2. PRAVACHOL [Concomitant]
     Indication: HYPERCHOLESTEROLAEMIA
  3. ESTRADERM [Concomitant]
     Indication: HORMONE REPLACEMENT THERAPY
  4. HYDROCHLOROTHIAZIDE [Concomitant]
     Indication: MENIERE'S DISEASE
  5. POTASSIUM CHLORIDE [Concomitant]
     Indication: SUPPLEMENTATION THERAPY
  6. ZANTAC [Concomitant]

REACTIONS (3)
  - RETINAL VASCULAR DISORDER [None]
  - VISUAL ACUITY REDUCED [None]
  - VITREOUS FLOATERS [None]
